FAERS Safety Report 19487420 (Version 2)
Quarter: 2021Q4

REPORT INFORMATION
  Report Type: Spontaneous
  Country: FR (occurrence: FR)
  Receive Date: 20210702
  Receipt Date: 20211125
  Transmission Date: 20220304
  Serious: Yes (Hospitalization)
  Sender: FDA-Public Use
  Company Number: FR-ELI_LILLY_AND_COMPANY-FR202106013968

PATIENT
  Age: 66 Year
  Sex: Female

DRUGS (2)
  1. OLUMIANT [Suspect]
     Active Substance: BARICITINIB
     Indication: Product used for unknown indication
     Dosage: 2 MG, UNKNOWN
     Route: 065
     Dates: start: 20190506
  2. OLUMIANT [Suspect]
     Active Substance: BARICITINIB
     Dosage: 4 MG, UNKNOWN
     Route: 065
     Dates: start: 20190523

REACTIONS (2)
  - Cardiac failure acute [Recovered/Resolved]
  - Cardiac failure congestive [Recovered/Resolved]

NARRATIVE: CASE EVENT DATE: 20190601
